FAERS Safety Report 9888755 (Version 1)
Quarter: 2014Q1

REPORT INFORMATION
  Report Type: Spontaneous
  Country: US (occurrence: None)
  Receive Date: 20140210
  Receipt Date: 20140210
  Transmission Date: 20141002
  Serious: Yes (Life-Threatening, Hospitalization, Disabling)
  Sender: FDA-Public Use
  Company Number: None

PATIENT
  Age: 62 Year
  Sex: Male

DRUGS (2)
  1. ANDROGEL [Suspect]
     Indication: BLOOD TESTOSTERONE DECREASED
     Dosage: 5 GM/DAY ONCE DAILY APPLIED TO A SURFACE, USUALLY THE SKIN
     Dates: start: 20050101, end: 20121027
  2. ANDROGEL [Suspect]
     Indication: ERECTILE DYSFUNCTION
     Dosage: 5 GM/DAY ONCE DAILY APPLIED TO A SURFACE, USUALLY THE SKIN
     Dates: start: 20050101, end: 20121027

REACTIONS (4)
  - Pulmonary embolism [None]
  - Decreased activity [None]
  - Myocardial strain [None]
  - Impaired work ability [None]
